FAERS Safety Report 19445107 (Version 2)
Quarter: 2021Q3

REPORT INFORMATION
  Report Type: Report from Study
  Country: KR (occurrence: KR)
  Receive Date: 20210622
  Receipt Date: 20210708
  Transmission Date: 20211014
  Serious: Yes (Hospitalization, Other)
  Sender: FDA-Public Use
  Company Number: KR-CELLTRION INC.-2021KR007749

PATIENT

DRUGS (22)
  1. HERZUMA [Suspect]
     Active Substance: TRASTUZUMAB-PKRB
     Dosage: 373 MG (WEIGHT: 62.2)
     Route: 042
     Dates: start: 20190806, end: 20190806
  2. CYCLOPHOSPHAMIDE. [Concomitant]
     Active Substance: CYCLOPHOSPHAMIDE
     Indication: CHEMOTHERAPY
     Dosage: UNK
     Dates: start: 20190409, end: 20190611
  3. HERZUMA [Suspect]
     Active Substance: TRASTUZUMAB-PKRB
     Dosage: 373 MG (WEIGHT: 62.2)
     Route: 042
     Dates: start: 20190716, end: 20190716
  4. HERZUMA [Suspect]
     Active Substance: TRASTUZUMAB-PKRB
     Dosage: 373 MG (WEIGHT: 62.2)
     Route: 042
     Dates: start: 20200211, end: 20200211
  5. HERZUMA [Suspect]
     Active Substance: TRASTUZUMAB-PKRB
     Dosage: 373 MG (WEIGHT: 62.2)
     Route: 042
     Dates: start: 20200303, end: 20200303
  6. HERZUMA [Suspect]
     Active Substance: TRASTUZUMAB-PKRB
     Dosage: 373 MG (WEIGHT: 62.2)
     Route: 042
     Dates: start: 20200414, end: 20200414
  7. HERZUMA [Suspect]
     Active Substance: TRASTUZUMAB-PKRB
     Dosage: 373 MG (WEIGHT: 62.2)
     Route: 042
     Dates: start: 20200618, end: 20200618
  8. DOCETAXEL. [Concomitant]
     Active Substance: DOCETAXEL
     Indication: CHEMOTHERAPY
     Dosage: 75 MG/M2
     Dates: start: 20190409, end: 20190611
  9. HERZUMA [Suspect]
     Active Substance: TRASTUZUMAB-PKRB
     Dosage: 373 MG (WEIGHT: 62.2)
     Route: 042
     Dates: start: 20191029, end: 20191029
  10. HERZUMA [Suspect]
     Active Substance: TRASTUZUMAB-PKRB
     Dosage: 373 MG (WEIGHT: 62.2)
     Route: 042
     Dates: start: 20191210, end: 20191210
  11. HERZUMA [Suspect]
     Active Substance: TRASTUZUMAB-PKRB
     Dosage: 373 MG (WEIGHT: 62.2)
     Route: 042
     Dates: start: 20190121, end: 20190121
  12. HERZUMA [Suspect]
     Active Substance: TRASTUZUMAB-PKRB
     Indication: HER2 POSITIVE BREAST CANCER
     Dosage: 498 MG (WEIGHT: 62.2)
     Route: 042
     Dates: start: 20190625, end: 20190625
  13. HERZUMA [Suspect]
     Active Substance: TRASTUZUMAB-PKRB
     Dosage: 373 MG EVERY 3 WEEKS
     Route: 042
     Dates: start: 20190625, end: 20190917
  14. HERZUMA [Suspect]
     Active Substance: TRASTUZUMAB-PKRB
     Dosage: 373 MG (WEIGHT: 62.2)
     Route: 042
     Dates: start: 20190917, end: 20190917
  15. HERZUMA [Suspect]
     Active Substance: TRASTUZUMAB-PKRB
     Dosage: 373 MG (WEIGHT: 62.2)
     Route: 042
     Dates: start: 20191008, end: 20191008
  16. HERZUMA [Suspect]
     Active Substance: TRASTUZUMAB-PKRB
     Dosage: 373 MG (WEIGHT: 62.2)
     Route: 042
     Dates: start: 20191119, end: 20191119
  17. HERZUMA [Suspect]
     Active Substance: TRASTUZUMAB-PKRB
     Dosage: 373 MG (WEIGHT: 62.2)
     Route: 042
     Dates: start: 20200324, end: 20200324
  18. HERZUMA [Suspect]
     Active Substance: TRASTUZUMAB-PKRB
     Dosage: 373 MG (WEIGHT: 62.2)
     Route: 042
     Dates: start: 20200528, end: 20200528
  19. HERZUMA [Suspect]
     Active Substance: TRASTUZUMAB-PKRB
     Dosage: 373 MG (WEIGHT: 62.2)
     Route: 042
     Dates: start: 20191231, end: 20191231
  20. HERZUMA [Suspect]
     Active Substance: TRASTUZUMAB-PKRB
     Dosage: 373 MG (WEIGHT: 62.2)
     Route: 042
     Dates: start: 20200507, end: 20200507
  21. LENARA [Concomitant]
     Indication: HORMONE THERAPY
     Dosage: UNK
     Dates: start: 20190625
  22. HERZUMA [Suspect]
     Active Substance: TRASTUZUMAB-PKRB
     Dosage: 373 MG (WEIGHT: 62.2)
     Route: 042
     Dates: start: 20190827, end: 20190827

REACTIONS (1)
  - Colon cancer [Recovering/Resolving]

NARRATIVE: CASE EVENT DATE: 20190918
